FAERS Safety Report 5654677-3 (Version None)
Quarter: 2008Q1

REPORT INFORMATION
  Report Type: 
  Country: None (occurrence: None)
  Receive Date: 20080307
  Receipt Date: 20080227
  Transmission Date: 20080703
  Serious: Yes (Hospitalization)
  Sender: FDA-Public Use
  Company Number: PHHO2007DE06441

PATIENT
  Age: 53 Year
  Sex: Male

DRUGS (2)
  1. MYFORTIC [Suspect]
     Indication: RENAL TRANSPLANT
     Dosage: 400 MG, BID
     Route: 048
     Dates: start: 20070309, end: 20071108
  2. MYFORTIC [Suspect]
     Indication: RENAL TRANSPLANT
     Dosage: 720 MG, BID
     Route: 048
     Dates: start: 20070604, end: 20071108

REACTIONS (13)
  - BIOPSY KIDNEY ABNORMAL [None]
  - BLOOD CREATININE INCREASED [None]
  - CATHETER REMOVAL [None]
  - EPIDIDYMAL INFECTION [None]
  - FEMORAL NERVE PALSY [None]
  - HYDRONEPHROSIS [None]
  - NEPHROSTOMY [None]
  - POST PROCEDURAL INFECTION [None]
  - TRANSPLANT REJECTION [None]
  - URETERAL CATHETERISATION [None]
  - URETERIC STENOSIS [None]
  - URINARY TRACT OBSTRUCTION [None]
  - VESICOURETERAL REFLUX SURGERY [None]
